FAERS Safety Report 20103447 (Version 1)
Quarter: 2021Q4

REPORT INFORMATION
  Report Type: Spontaneous
  Country: AU (occurrence: AU)
  Receive Date: 20211123
  Receipt Date: 20211123
  Transmission Date: 20220303
  Serious: Yes (Other)
  Sender: FDA-Public Use
  Company Number: AU-PFIZER INC-202101558230

PATIENT
  Age: 54 Year
  Sex: Female

DRUGS (1)
  1. STAQUIS [Suspect]
     Active Substance: CRISABOROLE
     Indication: Eczema

REACTIONS (4)
  - Haemorrhage [Unknown]
  - Pruritus [Unknown]
  - Product supply issue [Unknown]
  - Product dose omission issue [Unknown]
